FAERS Safety Report 13639253 (Version 1)
Quarter: 2017Q2

REPORT INFORMATION
  Report Type: Spontaneous
  Country: US (occurrence: US)
  Receive Date: 20170609
  Receipt Date: 20170609
  Transmission Date: 20170830
  Serious: No
  Sender: FDA-Public Use
  Company Number: US-ROCHE-1441312

PATIENT
  Age: 63 Year
  Sex: Male

DRUGS (12)
  1. KLONOPIN [Suspect]
     Active Substance: CLONAZEPAM
     Indication: ANXIETY
     Route: 065
     Dates: start: 2006
  2. KLONOPIN [Suspect]
     Active Substance: CLONAZEPAM
     Route: 065
  3. KADIAN [Concomitant]
     Active Substance: MORPHINE SULFATE
     Indication: PAIN
  4. CYMBALTA [Concomitant]
     Active Substance: DULOXETINE HYDROCHLORIDE
     Indication: PAIN
  5. TOPAMAX [Concomitant]
     Active Substance: TOPIRAMATE
     Indication: HEADACHE
  6. AMRIX [Concomitant]
     Active Substance: CYCLOBENZAPRINE HYDROCHLORIDE
     Indication: MUSCLE RELAXANT THERAPY
  7. ANDROGEL [Concomitant]
     Active Substance: TESTOSTERONE
     Indication: BLOOD TESTOSTERONE DECREASED
  8. LIPITOR [Concomitant]
     Active Substance: ATORVASTATIN CALCIUM
     Indication: BLOOD CHOLESTEROL INCREASED
  9. AMRIX [Concomitant]
     Active Substance: CYCLOBENZAPRINE HYDROCHLORIDE
     Indication: MUSCLE SPASMS
  10. AMINO ACID [Concomitant]
     Active Substance: AMINO ACIDS
  11. CLONAZEPAM. [Suspect]
     Active Substance: CLONAZEPAM
     Indication: ANXIETY
     Route: 065
  12. CYMBALTA [Concomitant]
     Active Substance: DULOXETINE HYDROCHLORIDE
     Indication: DEPRESSION
     Route: 065

REACTIONS (10)
  - Panic attack [Recovered/Resolved]
  - Pain [Unknown]
  - Drug ineffective [Unknown]
  - Confusional state [Recovered/Resolved]
  - Soliloquy [Recovered/Resolved]
  - Back pain [Recovered/Resolved]
  - Fatigue [Unknown]
  - Feeling abnormal [Recovered/Resolved]
  - Drug effect decreased [Unknown]
  - Malaise [Recovered/Resolved]

NARRATIVE: CASE EVENT DATE: 201406
